FAERS Safety Report 14293958 (Version 2)
Quarter: 2018Q1

REPORT INFORMATION
  Report Type: Spontaneous
  Country: US (occurrence: US)
  Receive Date: 20171216
  Receipt Date: 20180107
  Transmission Date: 20180509
  Serious: No
  Sender: FDA-Public Use
  Company Number: US-TEVA-2017-US-832708

PATIENT
  Sex: Female

DRUGS (1)
  1. ACTIQ [Suspect]
     Active Substance: FENTANYL CITRATE
     Indication: SPINAL PAIN
     Dates: start: 2004, end: 2006

REACTIONS (4)
  - Dental caries [Unknown]
  - Product use in unapproved indication [Unknown]
  - Tooth disorder [Unknown]
  - Product adhesion issue [Unknown]
